FAERS Safety Report 7861938-6 (Version None)
Quarter: 2011Q4

REPORT INFORMATION
  Report Type: 
  Country: None (occurrence: None)
  Receive Date: 20111027
  Receipt Date: 20111019
  Transmission Date: 20120403
  Serious: Yes (Hospitalization)
  Sender: FDA-Public Use
  Company Number: US-RB-033262-11

PATIENT
  Age: 44 Year
  Sex: Male

DRUGS (1)
  1. SUBOXONE [Suspect]
     Indication: PRODUCT USED FOR UNKNOWN INDICATION
     Dosage: DOSING DETAILS UNKNOWN
     Route: 065

REACTIONS (5)
  - ASTHMA [None]
  - DRUG WITHDRAWAL SYNDROME [None]
  - IRRITABILITY [None]
  - INSOMNIA [None]
  - RESTLESSNESS [None]
